FAERS Safety Report 21604754 (Version 1)
Quarter: 2022Q4

REPORT INFORMATION
  Report Type: Spontaneous
  Country: SE (occurrence: SE)
  Receive Date: 20221116
  Receipt Date: 20221116
  Transmission Date: 20230113
  Serious: Yes (Life-Threatening, Hospitalization)
  Sender: FDA-Public Use
  Company Number: None

PATIENT
  Age: 51 Year
  Sex: Male

DRUGS (5)
  1. ENALAPRIL [Suspect]
     Active Substance: ENALAPRIL
     Indication: Hypertension
     Dosage: DURATION 19 DAYS, FREQUENCY TIME 1DAYS.
     Dates: start: 20220910, end: 20220929
  2. EPLERENONE [Concomitant]
     Active Substance: EPLERENONE
     Indication: Product used for unknown indication
     Dosage: DURATION 12 DAYS, FREQUENCY TIME 1DAYS.
     Dates: start: 20220910, end: 20220922
  3. HYDROCHLOROTHIAZIDE [Concomitant]
     Active Substance: HYDROCHLOROTHIAZIDE
     Indication: Product used for unknown indication
     Dosage: UNIT DOSE:25 MG, DURATION 12 DAYS, FREQUENCY TIME 1 DAYS.
     Dates: start: 20220910, end: 20220922
  4. DOXAZOSIN [Concomitant]
     Active Substance: DOXAZOSIN MESYLATE
     Indication: Product used for unknown indication
     Dosage: UNIT DOSE:8 MG, DURATION 12 DAYS, FREQUENCY TIME 1DAYS.
     Dates: start: 20220910, end: 20220922
  5. METOPROLOL [Concomitant]
     Active Substance: METOPROLOL
     Indication: Product used for unknown indication
     Dosage: UNIT DOSE:100 MG, DURATION 12 DAYS, FREQUENCY TIME 1 DAYS.
     Dates: start: 20220910, end: 20220922

REACTIONS (1)
  - Angioedema [Recovered/Resolved]

NARRATIVE: CASE EVENT DATE: 20220929
